FAERS Safety Report 10469296 (Version 1)
Quarter: 2014Q3

REPORT INFORMATION
  Report Type: Spontaneous
  Country: AU (occurrence: None)
  Receive Date: 20140919
  Receipt Date: 20140919
  Transmission Date: 20150326
  Serious: Yes (Other)
  Sender: FDA-Public Use
  Company Number: 2014COV00112

PATIENT
  Age: 62 Year
  Sex: Male

DRUGS (6)
  1. TACROLIMUS (TACROLIMUS) [Suspect]
     Active Substance: TACROLIMUS
     Indication: RENAL TRANSPLANT
  2. NILUTAMIDE [Suspect]
     Active Substance: NILUTAMIDE
     Dosage: UNK  DURATION 8 DAYS
  3. TACROLIMUS (TACROLIMUS) [Suspect]
     Active Substance: TACROLIMUS
     Indication: IMMUNOSUPPRESSANT DRUG THERAPY
  4. PREDNISLONE [Concomitant]
  5. MYCOPHENOLATE MOFETIL. [Concomitant]
     Active Substance: MYCOPHENOLATE MOFETIL
  6. TACROLIMUS (TACROLIMUS) [Suspect]
     Active Substance: TACROLIMUS
     Indication: POSTOPERATIVE CARE

REACTIONS (6)
  - Tremor [None]
  - Renal failure acute [None]
  - Hyperglycaemia [None]
  - Neurotoxicity [None]
  - Immunosuppressant drug level increased [None]
  - Drug interaction [None]
